FAERS Safety Report 7075180-2 (Version None)
Quarter: 2010Q4

REPORT INFORMATION
  Report Type: 
  Country: None (occurrence: None)
  Receive Date: 20101029
  Receipt Date: 20100510
  Transmission Date: 20110411
  Serious: No
  Sender: FDA-Public Use
  Company Number: US-WYE-H15174410

PATIENT
  Sex: Female

DRUGS (2)
  1. ADVIL PM [Suspect]
     Dosage: 1 CAPLET
     Route: 048
     Dates: start: 20100509
  2. ATIVAN [Concomitant]

REACTIONS (1)
  - SOMNOLENCE [None]
